FAERS Safety Report 6383711-0 (Version None)
Quarter: 2009Q4

REPORT INFORMATION
  Report Type: 
  Country: None (occurrence: None)
  Receive Date: 20091001
  Receipt Date: 20090925
  Transmission Date: 20100525
  Serious: Yes (Other)
  Sender: FDA-Public Use
  Company Number: US-JNJFOC-20090908354

PATIENT
  Sex: Female
  Weight: 75.75 kg

DRUGS (6)
  1. DURAGESIC-100 [Suspect]
     Indication: SPINAL DISORDER
     Route: 062
  2. NEURONTIN [Concomitant]
     Indication: NEUROPATHY PERIPHERAL
     Route: 048
  3. WELLBUTRIN [Concomitant]
     Indication: DEPRESSION
     Route: 048
  4. KLONOPIN [Concomitant]
     Indication: ANXIETY
     Route: 048
  5. AXERT [Concomitant]
     Indication: MIGRAINE
     Route: 048
  6. FLEXERIL [Concomitant]
     Indication: MIGRAINE
     Route: 048

REACTIONS (7)
  - ASTHENIA [None]
  - DIZZINESS [None]
  - DYSPNOEA [None]
  - FUNGAL SKIN INFECTION [None]
  - PHARYNGITIS STREPTOCOCCAL [None]
  - RASH GENERALISED [None]
  - VULVOVAGINAL MYCOTIC INFECTION [None]
